FAERS Safety Report 8952753 (Version 1)
Quarter: 2012Q4

REPORT INFORMATION
  Report Type: Report from Study
  Country: DE (occurrence: DE)
  Receive Date: 20121205
  Receipt Date: 20121205
  Transmission Date: 20130627
  Serious: Yes (Hospitalization)
  Sender: FDA-Public Use
  Company Number: DE-BAXTER-2012BAX025156

PATIENT
  Age: 58 Year
  Sex: Female
  Weight: 60 kg

DRUGS (17)
  1. ENDOXAN 1G [Suspect]
     Indication: HER-2 POSITIVE BREAST CANCER
     Route: 042
     Dates: start: 20100318
  2. ENDOXAN 1G [Suspect]
     Route: 042
     Dates: start: 20100408
  3. TRASTUZUMAB [Suspect]
     Indication: HER-2 POSITIVE BREAST CANCER
     Dosage: Loading dose
     Route: 042
     Dates: start: 20100114
  4. TRASTUZUMAB [Suspect]
     Dosage: Maintenance dose
     Route: 042
     Dates: start: 20100204
  5. TRASTUZUMAB [Suspect]
     Route: 042
     Dates: start: 20100225
  6. DOCETAXEL [Suspect]
     Indication: HER-2 POSITIVE BREAST CANCER
     Route: 042
     Dates: start: 20100114
  7. DOCETAXEL [Suspect]
     Route: 042
     Dates: start: 20100225
  8. FLUOROURACIL [Suspect]
     Indication: HER-2 POSITIVE BREAST CANCER
     Route: 042
     Dates: start: 20100318
  9. FLUOROURACIL [Suspect]
     Route: 042
     Dates: start: 20100408
  10. EPIRUBICIN [Suspect]
     Indication: HER-2 POSITIVE BREAST CANCER
     Route: 042
     Dates: start: 20100318
  11. EPIRUBICIN [Suspect]
     Route: 042
     Dates: start: 20100408
  12. UROMITEXAN [Concomitant]
     Indication: DRUG USE FOR UNKNOWN INDICATION
     Route: 065
     Dates: start: 20100318, end: 20100318
  13. UROMITEXAN [Concomitant]
     Route: 065
     Dates: start: 20100408, end: 20100408
  14. GRANISETRON [Concomitant]
     Indication: DRUG USE FOR UNKNOWN INDICATION
     Route: 065
     Dates: start: 20100318, end: 20100318
  15. GRANISETRON [Concomitant]
     Route: 065
     Dates: start: 20100408, end: 20100408
  16. DEXAMETHASONE [Concomitant]
     Indication: DRUG USE FOR UNKNOWN INDICATION
     Route: 065
     Dates: start: 20100318, end: 20100318
  17. DEXAMETHASONE [Concomitant]
     Route: 065
     Dates: start: 20100408, end: 20100408

REACTIONS (1)
  - Pulmonary embolism [Recovered/Resolved with Sequelae]
